FAERS Safety Report 4595968-7 (Version None)
Quarter: 2005Q1

REPORT INFORMATION
  Report Type: 
  Country: None (occurrence: None)
  Receive Date: 20050224
  Receipt Date: 20050224
  Transmission Date: 20050727
  Serious: Yes (Life-Threatening, Disabling, Congenital Anomaly, Other)
  Sender: FDA-Public Use
  Company Number: None

PATIENT
  Age: 34 Year
  Sex: Male
  Weight: 86.1834 kg

DRUGS (2)
  1. EFFEXOR XR [Suspect]
     Indication: ANXIETY
     Dosage: 150MG  DAILY ORAL
     Route: 048
     Dates: start: 20020601, end: 20040528
  2. EFFEXOR XR [Suspect]
     Indication: DEPRESSION
     Dosage: 150MG  DAILY ORAL
     Route: 048
     Dates: start: 20020601, end: 20040528

REACTIONS (29)
  - ABNORMAL DREAMS [None]
  - AGITATION [None]
  - CONVULSION [None]
  - DEAFNESS [None]
  - DISORIENTATION [None]
  - DRUG HYPERSENSITIVITY [None]
  - DRUG INEFFECTIVE [None]
  - EAR DISCOMFORT [None]
  - EMOTIONAL DISORDER [None]
  - FEELING ABNORMAL [None]
  - FEELING HOT [None]
  - HYPERHIDROSIS [None]
  - IMPAIRED DRIVING ABILITY [None]
  - IMPAIRED WORK ABILITY [None]
  - INNER EAR DISORDER [None]
  - INSOMNIA [None]
  - IRRITABILITY [None]
  - LOSS OF LIBIDO [None]
  - MEDICATION ERROR [None]
  - MUSCLE TWITCHING [None]
  - MYALGIA [None]
  - OEDEMA PERIPHERAL [None]
  - PARAESTHESIA [None]
  - PRURITUS [None]
  - SOMNOLENCE [None]
  - STRESS [None]
  - TEMPERATURE INTOLERANCE [None]
  - TINNITUS [None]
  - VERTIGO [None]
